FAERS Safety Report 7405357-5 (Version None)
Quarter: 2011Q2

REPORT INFORMATION
  Report Type: 
  Country: None (occurrence: None)
  Receive Date: 20110411
  Receipt Date: 20110405
  Transmission Date: 20111010
  Serious: Yes (Other)
  Sender: FDA-Public Use
  Company Number: PHHY2010BR74377

PATIENT
  Sex: Female

DRUGS (1)
  1. RASILEZ AMLO [Suspect]
     Dosage: TABLET, 300/100 MG

REACTIONS (2)
  - SWELLING FACE [None]
  - OEDEMA PERIPHERAL [None]
